FAERS Safety Report 8119957-0 (Version None)
Quarter: 2012Q1

REPORT INFORMATION
  Report Type: 
  Country: None (occurrence: None)
  Receive Date: 20120206
  Receipt Date: 20120206
  Transmission Date: 20120608
  Serious: Yes (Other)
  Sender: FDA-Public Use
  Company Number: None

PATIENT
  Sex: Male
  Weight: 54.4316 kg

DRUGS (2)
  1. REGLAN [Suspect]
     Indication: NAUSEA
     Dosage: 10 MG 4X DAY ORAL
     Route: 048
  2. REGLAN [Suspect]
     Indication: NAUSEA
     Dosage: 10 MG 4X DAY ORAL
     Route: 048

REACTIONS (4)
  - RESTLESS LEGS SYNDROME [None]
  - TIC [None]
  - TARDIVE DYSKINESIA [None]
  - INSOMNIA [None]
